FAERS Safety Report 8873610 (Version 1)
Quarter: 2012Q4

REPORT INFORMATION
  Report Type: 
  Country: JP (occurrence: JP)
  Receive Date: 20121030
  Receipt Date: 20121030
  Transmission Date: 20130627
  Serious: Yes (Other)
  Sender: FDA-Public Use
  Company Number: PHHY2012JP094816

PATIENT
  Age: 31 Year
  Sex: Female

DRUGS (18)
  1. PREDNISOLONE [Suspect]
     Indication: NEPHROTIC SYNDROME
     Dosage: 60 mg, UNK
     Route: 048
  2. PREDNISOLONE [Suspect]
     Dosage: 60 mg, UNK
     Route: 048
  3. PREDNISOLONE [Suspect]
     Dosage: 65 mg, UNK
     Route: 048
  4. PREDNISOLONE [Suspect]
     Dosage: 25 mg, UNK
     Route: 048
  5. PREDNISOLONE [Suspect]
     Dosage: 30 mg, UNK
     Route: 048
  6. PREDNISOLONE [Suspect]
     Dosage: 25 mg, UNK
     Route: 048
  7. PREDNISOLONE [Suspect]
     Dosage: 27.5 mg, UNK
  8. PREDNISOLONE [Suspect]
     Dosage: 32.5 mg, UNK
  9. PREDNISOLONE [Suspect]
     Dosage: 50 mg, UNK
  10. PREDNISOLONE [Suspect]
     Dosage: 30-50 mg, UNK
  11. PREDNISOLONE [Suspect]
     Dosage: 10 mg, UNK
  12. CICLOSPORIN [Concomitant]
     Indication: NEPHROTIC SYNDROME
     Dosage: 150 mg, BID
     Route: 048
  13. CICLOSPORIN [Concomitant]
     Dosage: 120 mg, UNK
     Route: 048
  14. METHYLPREDNISOLONE [Concomitant]
     Indication: NEPHROTIC SYNDROME
     Dosage: 500 mg, UNK
  15. TACROLIMUS [Concomitant]
     Indication: NEPHROTIC SYNDROME
  16. MIZORIBINE [Concomitant]
     Indication: NEPHROTIC SYNDROME
  17. MYCOPHENOLATE MOFETIL [Concomitant]
     Indication: NEPHROTIC SYNDROME
     Dosage: 1500 mg, UNK
  18. CYCLOPHOSPHAMIDE [Concomitant]
     Indication: NEPHROTIC SYNDROME

REACTIONS (3)
  - Drug dependence [Unknown]
  - Nephrotic syndrome [Recovered/Resolved]
  - Exposure during pregnancy [Unknown]
